FAERS Safety Report 5801063-9 (Version None)
Quarter: 2008Q3

REPORT INFORMATION
  Report Type: 
  Country: None (occurrence: None)
  Receive Date: 20080704
  Receipt Date: 20080630
  Transmission Date: 20090109
  Serious: Yes (Hospitalization)
  Sender: FDA-Public Use
  Company Number: US-ELI_LILLY_AND_COMPANY-US200806006604

PATIENT
  Sex: Male

DRUGS (2)
  1. HUMULIN R [Suspect]
  2. HUMULIN 70/30 [Suspect]

REACTIONS (5)
  - BLOOD GLUCOSE INCREASED [None]
  - CARDIAC OPERATION [None]
  - CHEST PAIN [None]
  - HAEMORRHAGE [None]
  - HOSPITALISATION [None]
